FAERS Safety Report 22108442 (Version 1)
Quarter: 2023Q1

REPORT INFORMATION
  Report Type: Spontaneous
  Country: US (occurrence: None)
  Receive Date: 20230317
  Receipt Date: 20230317
  Transmission Date: 20230418
  Serious: No
  Sender: FDA-Public Use
  Company Number: 2023A040699

PATIENT
  Age: 819 Month
  Sex: Female
  Weight: 45.4 kg

DRUGS (2)
  1. BREZTRI [Suspect]
     Active Substance: BUDESONIDE\FORMOTEROL\GLYCOPYRROLATE
     Indication: Emphysema
     Route: 055
     Dates: start: 2022
  2. BUDESONIDE [Suspect]
     Active Substance: BUDESONIDE
     Indication: Emphysema
     Dosage: 0.5MG/2ML VIA NEBULIZER
     Route: 055

REACTIONS (7)
  - Emotional disorder [Unknown]
  - Dyspnoea [Unknown]
  - Product quality issue [Unknown]
  - Intentional product misuse [Unknown]
  - Device use issue [Unknown]
  - Product use issue [Unknown]
  - Wrong technique in device usage process [Unknown]

NARRATIVE: CASE EVENT DATE: 20230201
